FAERS Safety Report 23876278 (Version 2)
Quarter: 2024Q2

REPORT INFORMATION
  Report Type: Report from Study
  Country: JP (occurrence: JP)
  Receive Date: 20240520
  Receipt Date: 20240617
  Transmission Date: 20240715
  Serious: Yes (Other)
  Sender: FDA-Public Use
  Company Number: JP-GSK-JP2024JPN062042

PATIENT

DRUGS (22)
  1. BELIMUMAB [Suspect]
     Active Substance: BELIMUMAB
     Indication: Systemic lupus erythematosus
     Dosage: 8.6 MG/KG
     Route: 041
     Dates: start: 20231025, end: 20231025
  2. BELIMUMAB [Suspect]
     Active Substance: BELIMUMAB
     Dosage: 8.4 MG/KG
     Route: 041
     Dates: start: 20231108, end: 20231108
  3. BELIMUMAB [Suspect]
     Active Substance: BELIMUMAB
     Dosage: 8.3 MG/KG
     Route: 041
     Dates: start: 20231122, end: 20231122
  4. BELIMUMAB [Suspect]
     Active Substance: BELIMUMAB
     Dosage: 7.8 MG/KG
     Route: 041
     Dates: start: 20231220, end: 20231220
  5. BELIMUMAB [Suspect]
     Active Substance: BELIMUMAB
     Dosage: 7.7 MG/KG
     Route: 041
     Dates: start: 20240117, end: 20240117
  6. BELIMUMAB [Suspect]
     Active Substance: BELIMUMAB
     Dosage: 10 MG/KG
     Route: 041
     Dates: start: 20240214, end: 20240214
  7. BELIMUMAB [Suspect]
     Active Substance: BELIMUMAB
     Dosage: 7.6 MG/KG
     Route: 041
     Dates: start: 20240313, end: 20240313
  8. BELIMUMAB [Suspect]
     Active Substance: BELIMUMAB
     Dosage: 7.7 MG/KG
     Route: 041
     Dates: start: 20240410, end: 20240410
  9. PREDONINE [Suspect]
     Active Substance: PREDNISOLONE
     Indication: Systemic lupus erythematosus
     Dosage: 20 MG, QD
     Route: 048
     Dates: end: 20231108
  10. PREDONINE [Suspect]
     Active Substance: PREDNISOLONE
     Dosage: 17.5 MG, QD
     Route: 048
     Dates: start: 20231109, end: 20231122
  11. PREDONINE [Suspect]
     Active Substance: PREDNISOLONE
     Dosage: 15 MG, QD
     Route: 048
     Dates: start: 20231123, end: 20231205
  12. PREDONINE [Suspect]
     Active Substance: PREDNISOLONE
     Dosage: 12.5 MG, QD
     Route: 048
     Dates: start: 20231206, end: 20231220
  13. PREDONINE [Suspect]
     Active Substance: PREDNISOLONE
     Dosage: 10 MG, QD
     Route: 048
     Dates: start: 20231221, end: 20240313
  14. PREDONINE [Suspect]
     Active Substance: PREDNISOLONE
     Dosage: 20 MG, QD
     Route: 048
     Dates: start: 20240314
  15. SOLU-MEDROL [Concomitant]
     Active Substance: METHYLPREDNISOLONE SODIUM SUCCINATE
     Indication: Systemic lupus erythematosus
     Dosage: UNK
  16. CANDESARTAN CILEXETIL [Concomitant]
     Active Substance: CANDESARTAN CILEXETIL
     Indication: Gastrointestinal disorder prophylaxis
     Dosage: UNK
  17. ONEALFA [Concomitant]
     Active Substance: ALFACALCIDOL
     Indication: Osteoporosis prophylaxis
     Dosage: UNK
  18. FAMOTIDINE [Concomitant]
     Active Substance: FAMOTIDINE
     Indication: Gastritis prophylaxis
     Dosage: UNK
  19. PLAQUENIL [Concomitant]
     Active Substance: HYDROXYCHLOROQUINE SULFATE
     Indication: Systemic lupus erythematosus
     Dosage: UNK
  20. CELLCEPT [Concomitant]
     Active Substance: MYCOPHENOLATE MOFETIL
     Indication: Systemic lupus erythematosus
     Dosage: UNK
  21. FERROUS SULFATE [Concomitant]
     Active Substance: FERROUS SULFATE
     Dosage: UNK
  22. ALLEGRA [Concomitant]
     Active Substance: FEXOFENADINE HYDROCHLORIDE
     Dosage: UNK

REACTIONS (4)
  - Glaucoma [Not Recovered/Not Resolved]
  - Acne [Recovered/Resolved]
  - Prescribed underdose [Unknown]
  - Off label use [Unknown]

NARRATIVE: CASE EVENT DATE: 20231025
